FAERS Safety Report 8419433-1 (Version None)
Quarter: 2012Q2

REPORT INFORMATION
  Report Type: 
  Country: None (occurrence: None)
  Receive Date: 20120607
  Receipt Date: 20120528
  Transmission Date: 20120825
  Serious: Yes (Hospitalization)
  Sender: FDA-Public Use
  Company Number: JP-GLAXOSMITHKLINE-B0787918A

PATIENT
  Sex: Female

DRUGS (7)
  1. LAMICTAL [Suspect]
     Indication: EPILEPSY
     Dosage: 50MG PER DAY
     Route: 048
     Dates: start: 20120216, end: 20120306
  2. TEGRETOL [Concomitant]
     Indication: EPILEPSY
     Dosage: 200MG PER DAY
     Route: 048
  3. MYSTAN [Concomitant]
  4. TENORMIN [Concomitant]
     Indication: ATRIAL FIBRILLATION
     Dosage: 25MG PER DAY
     Route: 048
  5. BLOSTAR M [Concomitant]
     Indication: GASTRITIS
     Dosage: 10MG PER DAY
     Route: 048
     Dates: start: 20120216
  6. KEPPRA [Concomitant]
  7. WARFARIN SODIUM [Concomitant]
     Indication: ATRIAL FIBRILLATION
     Dosage: 3MG PER DAY
     Route: 048

REACTIONS (8)
  - TOXIC SKIN ERUPTION [None]
  - RASH GENERALISED [None]
  - APHTHOUS STOMATITIS [None]
  - PRURITUS [None]
  - RASH [None]
  - WHITE BLOOD CELL COUNT DECREASED [None]
  - PIGMENTATION DISORDER [None]
  - HEPATIC FUNCTION ABNORMAL [None]
